FAERS Safety Report 26189497 (Version 1)
Quarter: 2025Q4

REPORT INFORMATION
  Report Type: Spontaneous
  Country: EU (occurrence: EU)
  Receive Date: 20251223
  Receipt Date: 20251223
  Transmission Date: 20260117
  Serious: Yes (Hospitalization, Other)
  Sender: SANOFI AVENTIS
  Company Number: None

PATIENT
  Age: 3 Month
  Weight: 7.8 kg

DRUGS (1)
  1. NIRSEVIMAB [Suspect]
     Active Substance: NIRSEVIMAB
     Dosage: UNK
     Route: 030
     Dates: start: 20251016, end: 20251016

REACTIONS (1)
  - Infantile spasms [Recovering/Resolving]

NARRATIVE: CASE EVENT DATE: 20251016
